FAERS Safety Report 22182652 (Version 2)
Quarter: 2023Q2

REPORT INFORMATION
  Report Type: Spontaneous
  Country: CN (occurrence: None)
  Receive Date: 20230406
  Receipt Date: 20230414
  Transmission Date: 20230722
  Serious: Yes (Other)
  Sender: FDA-Public Use
  Company Number: 2023A075844

PATIENT
  Age: 22964 Day
  Sex: Female
  Weight: 53.2 kg

DRUGS (2)
  1. OSIMERTINIB MESYLATE [Suspect]
     Active Substance: OSIMERTINIB MESYLATE
     Indication: Chemotherapy
     Route: 048
     Dates: start: 20230119, end: 20230215
  2. PEMETREXED DISODIUM [Suspect]
     Active Substance: PEMETREXED DISODIUM
     Indication: Aerosolised chemotherapy
     Route: 041
     Dates: start: 20230119, end: 20230119

REACTIONS (3)
  - Vitreous opacities [Unknown]
  - Vitreous detachment [Unknown]
  - Vitreous loss [Unknown]

NARRATIVE: CASE EVENT DATE: 20230209
